FAERS Safety Report 11330856 (Version 1)
Quarter: 2015Q3

REPORT INFORMATION
  Report Type: Spontaneous
  Country: US (occurrence: None)
  Receive Date: 20150731
  Receipt Date: 20150731
  Transmission Date: 20151125
  Serious: Yes (Hospitalization)
  Sender: FDA-Public Use
  Company Number: None

PATIENT
  Sex: Male

DRUGS (6)
  1. TRUVADA [Suspect]
     Active Substance: EMTRICITABINE\TENOFOVIR DISOPROXIL FUMARATE
     Dosage: 200MG-300 MG TABLET
     Route: 048
     Dates: start: 20090821
  2. MELOXICAM. [Concomitant]
     Active Substance: MELOXICAM
  3. ROPINIROLE. [Concomitant]
     Active Substance: ROPINIROLE
  4. ZOLPIDEM [Concomitant]
     Active Substance: ZOLPIDEM\ZOLPIDEM TARTRATE
  5. CHANTIX [Concomitant]
     Active Substance: VARENICLINE TARTRATE
  6. GABAPENTIN 600MG [Suspect]
     Active Substance: GABAPENTIN
     Route: 048
     Dates: start: 20140514

REACTIONS (2)
  - Renal failure [None]
  - Vomiting [None]
